FAERS Safety Report 18664681 (Version 3)
Quarter: 2021Q1

REPORT INFORMATION
  Report Type: Report from Study
  Country: BR (occurrence: BR)
  Receive Date: 20201225
  Receipt Date: 20210316
  Transmission Date: 20210419
  Serious: Yes (Hospitalization, Other)
  Sender: FDA-Public Use
  Company Number: NVSC2020BR250021

PATIENT
  Age: 52 Year
  Sex: Male

DRUGS (12)
  1. VOTRIENT [Suspect]
     Active Substance: PAZOPANIB HYDROCHLORIDE
     Dosage: UNK, QD
     Route: 065
     Dates: end: 20201211
  2. AMLODIPINE [Concomitant]
     Active Substance: AMLODIPINE BESYLATE
     Indication: CARDIAC DISORDER
     Dosage: UNK
     Route: 065
  3. VOTRIENT [Suspect]
     Active Substance: PAZOPANIB HYDROCHLORIDE
     Dosage: 800 MG, QD (2 TABLETS PER DAY)
     Route: 065
     Dates: start: 202005
  4. VOTRIENT [Suspect]
     Active Substance: PAZOPANIB HYDROCHLORIDE
     Dosage: UNK, QD (ONCE A DAY)
     Route: 065
     Dates: end: 20201211
  5. VOTRIENT [Suspect]
     Active Substance: PAZOPANIB HYDROCHLORIDE
     Dosage: UNK UNK, QD (2 PER DAY)
     Route: 065
     Dates: start: 20200515
  6. VOTRIENT [Suspect]
     Active Substance: PAZOPANIB HYDROCHLORIDE
     Dosage: UNK
     Route: 065
     Dates: start: 202007
  7. ACETYLSALICYLIC ACID [Concomitant]
     Active Substance: ASPIRIN
     Indication: CARDIAC DISORDER
     Dosage: UNK
     Route: 065
  8. VOTRIENT [Suspect]
     Active Substance: PAZOPANIB HYDROCHLORIDE
     Indication: LUNG CANCER METASTATIC
     Dosage: 400 MG, QD (2 TABLETS)
     Route: 065
     Dates: start: 20200515
  9. VOTRIENT [Suspect]
     Active Substance: PAZOPANIB HYDROCHLORIDE
     Dosage: 200 MG, QD (1 TABLETS)
     Route: 065
  10. VOTRIENT [Suspect]
     Active Substance: PAZOPANIB HYDROCHLORIDE
     Dosage: UNK, QD
     Route: 065
     Dates: start: 202101
  11. VOTRIENT [Suspect]
     Active Substance: PAZOPANIB HYDROCHLORIDE
     Indication: METASTATIC RENAL CELL CARCINOMA
     Dosage: 1 DF, QD
     Route: 065
  12. VOTRIENT [Suspect]
     Active Substance: PAZOPANIB HYDROCHLORIDE
     Dosage: 400 MG, QD (TWO HOURS AFTER LUNCH)
     Route: 065
     Dates: start: 202009

REACTIONS (13)
  - Decreased immune responsiveness [Not Recovered/Not Resolved]
  - Illness [Unknown]
  - Seizure [Unknown]
  - Inappropriate schedule of product administration [Not Recovered/Not Resolved]
  - Ill-defined disorder [Unknown]
  - Hypertension [Recovered/Resolved]
  - Inappropriate schedule of product administration [Recovered/Resolved]
  - Weight decreased [Unknown]
  - Nervous system disorder [Recovering/Resolving]
  - Haemorrhage intracranial [Unknown]
  - Intracranial pressure increased [Recovered/Resolved]
  - Platelet count decreased [Not Recovered/Not Resolved]
  - Neurological procedural complication [Not Recovered/Not Resolved]

NARRATIVE: CASE EVENT DATE: 202007
